FAERS Safety Report 7830842-1 (Version None)
Quarter: 2011Q4

REPORT INFORMATION
  Report Type: 
  Country: None (occurrence: None)
  Receive Date: 20111021
  Receipt Date: 20111017
  Transmission Date: 20120403
  Serious: Yes (Hospitalization)
  Sender: FDA-Public Use
  Company Number: US-PFIZER INC-2011249746

PATIENT
  Sex: Female

DRUGS (7)
  1. MECLIZINE HCL [Suspect]
     Dosage: 25 MG, UNK
     Dates: start: 20110204
  2. INSULIN DETEMIR [Suspect]
     Indication: TYPE 2 DIABETES MELLITUS
     Dosage: 16 IU, UNK
     Dates: start: 20101019, end: 20101019
  3. ANGIOTENSINAMIDE [Concomitant]
  4. BLINDED THERAPY [Suspect]
     Indication: TYPE 2 DIABETES MELLITUS
     Dosage: UNK
     Dates: start: 20100729
  5. METFORMIN HCL [Suspect]
     Indication: TYPE 2 DIABETES MELLITUS
     Dosage: 1000 MG, UNK
  6. GLIMEPIRIDE [Suspect]
     Indication: TYPE 2 DIABETES MELLITUS
     Dosage: 4 MG, UNK
  7. LASIX [Suspect]

REACTIONS (1)
  - ORTHOSTATIC HYPOTENSION [None]
